FAERS Safety Report 23100407 (Version 4)
Quarter: 2025Q3

REPORT INFORMATION
  Report Type: Spontaneous
  Country: US (occurrence: US)
  Receive Date: 20231024
  Receipt Date: 20250903
  Transmission Date: 20251020
  Serious: Yes (Hospitalization)
  Sender: PFIZER
  Company Number: US-PFIZER INC-PV202300173708

PATIENT
  Age: 63 Year
  Sex: Female
  Weight: 88.435 kg

DRUGS (4)
  1. XELJANZ XR [Suspect]
     Active Substance: TOFACITINIB CITRATE
     Indication: Rheumatoid arthritis
     Dosage: 11 MG, BID (22 MG FOR 8 WEEKS)
     Route: 048
  2. XELJANZ XR [Suspect]
     Active Substance: TOFACITINIB CITRATE
     Dates: start: 20210206
  3. METHOTREXATE [Concomitant]
     Active Substance: METHOTREXATE
     Dates: end: 20231201
  4. CELEBREX [Concomitant]
     Active Substance: CELECOXIB

REACTIONS (6)
  - Pneumonia [Unknown]
  - Feeling abnormal [Recovered/Resolved]
  - Blood sodium decreased [Unknown]
  - Diarrhoea [Unknown]
  - Mucous stools [Recovered/Resolved]
  - Off label use [Unknown]

NARRATIVE: CASE EVENT DATE: 20210206
